FAERS Safety Report 7995049-6 (Version None)
Quarter: 2011Q4

REPORT INFORMATION
  Report Type: 
  Country: None (occurrence: None)
  Receive Date: 20111220
  Receipt Date: 20111214
  Transmission Date: 20120403
  Serious: Yes (Death, Life-Threatening, Other)
  Sender: FDA-Public Use
  Company Number: JP-PFIZER INC-2011292714

PATIENT
  Age: 65 Year
  Sex: Female
  Weight: 45.4 kg

DRUGS (16)
  1. WARFARIN [Concomitant]
     Indication: THROMBOSIS PROPHYLAXIS
     Dosage: 1 MG, 1X/DAY
     Route: 048
     Dates: start: 20111128, end: 20111201
  2. VENOGLOBULIN [Concomitant]
     Indication: SEPSIS
     Dosage: 5 G, 1X/DAY
     Route: 041
     Dates: start: 20111129, end: 20111201
  3. ALLOPURINOL [Suspect]
     Indication: HYPERURICAEMIA
     Dosage: 100 MG, 1X/DAY
     Route: 048
     Dates: start: 20111128, end: 20111129
  4. THEOLONG [Concomitant]
     Indication: ASTHMA
     Dosage: 200 MG, 2X/DAY
     Route: 048
     Dates: start: 20111128, end: 20111201
  5. HIRNAMIN [Concomitant]
     Indication: INSOMNIA
     Dosage: 12.5 MG, 1X/DAY
     Route: 048
     Dates: start: 20111128, end: 20111201
  6. PAZUCROSS [Concomitant]
     Indication: INFECTION
     Dosage: 1000 MG, 1X/DAY
     Route: 041
     Dates: start: 20111129, end: 20111130
  7. ZYVOX [Suspect]
     Indication: INFECTION PROPHYLAXIS
     Dosage: 600 MG, 2X/DAY
     Route: 048
     Dates: start: 20111128, end: 20111129
  8. ZYVOX [Suspect]
     Dosage: 1200 MG DAILY
     Route: 042
  9. LASIX [Concomitant]
     Indication: RENAL FAILURE
     Dosage: 20 MG, 2X/DAY
     Route: 048
     Dates: start: 20111128, end: 20111201
  10. SYMBICORT [Concomitant]
     Indication: ASTHMA
     Dosage: 2 DF, 2X/DAY
     Route: 055
     Dates: start: 20111128, end: 20111201
  11. DORIPENEM MONOHYDRATE [Concomitant]
     Dosage: .5 G, 1X/DAY
     Route: 041
     Dates: start: 20111201, end: 20111201
  12. MIRTAZAPINE [Concomitant]
     Indication: INSOMNIA
     Dosage: 15 MG, 1X/DAY
     Route: 048
     Dates: start: 20111128, end: 20111201
  13. ALOSENN [Concomitant]
     Indication: CONSTIPATION
     Dosage: 0.5 G, 1X/DAY
     Route: 048
     Dates: start: 20111128, end: 20111201
  14. DORIPENEM MONOHYDRATE [Concomitant]
     Indication: INFECTION
     Dosage: 0.5 G, 2X/DAY
     Route: 041
     Dates: start: 20111130, end: 20111130
  15. FAMOTIDINE [Concomitant]
     Indication: PROPHYLAXIS
     Dosage: 10 MG, 1X/DAY
     Route: 048
     Dates: start: 20111128, end: 20111201
  16. PREDNISOLONE [Concomitant]
     Indication: SYSTEMIC LUPUS ERYTHEMATOSUS
     Dosage: 10 MG, 1X/DAY
     Route: 048
     Dates: start: 20111128, end: 20111201

REACTIONS (1)
  - PANCYTOPENIA [None]
